FAERS Safety Report 8849557 (Version 1)
Quarter: 2012Q4

REPORT INFORMATION
  Report Type: Spontaneous
  Country: US (occurrence: None)
  Receive Date: 20121018
  Receipt Date: 20121018
  Transmission Date: 20130627
  Serious: Yes (Other)
  Sender: FDA-Public Use
  Company Number: None

PATIENT
  Age: 42 Year
  Sex: Female
  Weight: 63.5 kg

DRUGS (1)
  1. CYMBALTA [Suspect]
     Indication: ANXIETY
     Dosage: 60mg 1x day po
     Route: 048
     Dates: start: 20120926, end: 20121017

REACTIONS (6)
  - Depression [None]
  - Mania [None]
  - Influenza like illness [None]
  - Dizziness [None]
  - Nausea [None]
  - Fatigue [None]
